FAERS Safety Report 17346328 (Version 1)
Quarter: 2020Q1

REPORT INFORMATION
  Report Type: Report from Study
  Country: US (occurrence: US)
  Receive Date: 20200129
  Receipt Date: 20200129
  Transmission Date: 20200409
  Serious: No
  Sender: FDA-Public Use
  Company Number: US-EXELIXIS-CABO-19022614

PATIENT
  Age: 65 Year
  Sex: Male
  Weight: 102.04 kg

DRUGS (2)
  1. TESTOSTERONE. [Concomitant]
     Active Substance: TESTOSTERONE
     Dosage: UNK
  2. CABOMETYX [Suspect]
     Active Substance: CABOZANTINIB S-MALATE
     Indication: THYROID CANCER
     Dosage: 40 MG, QD
     Route: 048
     Dates: start: 201906, end: 20190713

REACTIONS (5)
  - Blister [Unknown]
  - Nausea [Unknown]
  - Off label use [Unknown]
  - Diarrhoea [Unknown]
  - Vomiting [Unknown]

NARRATIVE: CASE EVENT DATE: 201906
